FAERS Safety Report 16211657 (Version 2)
Quarter: 2019Q2

REPORT INFORMATION
  Report Type: Report from Study
  Country: US (occurrence: US)
  Receive Date: 20190418
  Receipt Date: 20190501
  Transmission Date: 20190711
  Serious: Yes (Hospitalization, Other)
  Sender: FDA-Public Use
  Company Number: US-ROCHE-2301219

PATIENT
  Age: 61 Year
  Sex: Female
  Weight: 63.56 kg

DRUGS (12)
  1. 4-AMINOPYRIDINE [Concomitant]
     Active Substance: DALFAMPRIDINE
  2. MIRABEGRON [Concomitant]
     Active Substance: MIRABEGRON
     Indication: MICTURITION URGENCY
  3. OCREVUS [Suspect]
     Active Substance: OCRELIZUMAB
     Route: 042
     Dates: start: 2018
  4. RITUXAN [Suspect]
     Active Substance: RITUXIMAB
     Route: 042
  5. VITAMIN C [Concomitant]
     Active Substance: ASCORBIC ACID
  6. RITUXAN [Suspect]
     Active Substance: RITUXIMAB
     Indication: SECONDARY PROGRESSIVE MULTIPLE SCLEROSIS
     Dosage: GIVEN 2 WEEKS APART ;ONGOING: NO
     Route: 042
  7. ACETAMINOPHEN. [Concomitant]
     Active Substance: ACETAMINOPHEN
  8. IBUPROFEN. [Concomitant]
     Active Substance: IBUPROFEN
  9. GLYCOLIC ACID [Concomitant]
     Active Substance: GLYCOLIC ACID
  10. OCREVUS [Suspect]
     Active Substance: OCRELIZUMAB
     Indication: SECONDARY PROGRESSIVE MULTIPLE SCLEROSIS
     Route: 042
     Dates: start: 201707
  11. MODAFINIL. [Concomitant]
     Active Substance: MODAFINIL
     Indication: FATIGUE
  12. LISINOPRIL. [Concomitant]
     Active Substance: LISINOPRIL
     Indication: HYPERTENSION

REACTIONS (9)
  - Intentional product use issue [Unknown]
  - White blood cell count increased [Unknown]
  - Bacteraemia [Recovered/Resolved]
  - Pneumonia streptococcal [Unknown]
  - Intentional product use issue [Unknown]
  - Blood sodium decreased [Unknown]
  - Sepsis [Unknown]
  - Off label use [Unknown]
  - B-lymphocyte count decreased [Unknown]

NARRATIVE: CASE EVENT DATE: 201707
